FAERS Safety Report 6271317-3 (Version None)
Quarter: 2009Q3

REPORT INFORMATION
  Report Type: 
  Country: None (occurrence: None)
  Receive Date: 20090716
  Receipt Date: 20090716
  Transmission Date: 20100115
  Serious: Yes (Other)
  Sender: FDA-Public Use
  Company Number: None

PATIENT
  Age: 62 Year
  Sex: Male
  Weight: 77.1115 kg

DRUGS (1)
  1. ASTEPRO [Suspect]
     Indication: NASAL DISORDER
     Dosage: 1 OR 2 SPRAYS 2X DAILY NASAL
     Route: 045
     Dates: start: 20090401, end: 20090405

REACTIONS (4)
  - DYSGEUSIA [None]
  - HYPOGEUSIA [None]
  - HYPOSMIA [None]
  - PAROSMIA [None]
